FAERS Safety Report 11901808 (Version 1)
Quarter: 2016Q1

REPORT INFORMATION
  Report Type: Report from Study
  Country: US (occurrence: US)
  Receive Date: 20160108
  Receipt Date: 20160108
  Transmission Date: 20160526
  Serious: No
  Sender: FDA-Public Use
  Company Number: US-ABBVIE-15P-163-1485278-00

PATIENT
  Sex: Male

DRUGS (1)
  1. VIEKIRA PAK [Suspect]
     Active Substance: DASABUVIR\OMBITASVIR\PARITAPREVIR\RITONAVIR
     Indication: CHRONIC HEPATITIS
     Dosage: 12.5MG/7.5MG/50MG IN THE MORNING/ 250MG TAB BID
     Route: 048
     Dates: start: 20151013

REACTIONS (3)
  - Pruritus [Unknown]
  - Headache [Unknown]
  - Nausea [Unknown]
